FAERS Safety Report 13253082 (Version 1)
Quarter: 2017Q1

REPORT INFORMATION
  Report Type: Spontaneous
  Country: US (occurrence: US)
  Receive Date: 20170220
  Receipt Date: 20170220
  Transmission Date: 20170428
  Serious: No
  Sender: FDA-Public Use
  Company Number: US-009507513-1702USA005544

PATIENT
  Age: 55 Year
  Sex: Male

DRUGS (1)
  1. TEMODAR [Suspect]
     Active Substance: TEMOZOLOMIDE
     Indication: ASTROCYTOMA MALIGNANT
     Dosage: 150 MG/M2, CYCLICAL (DAYS 1?5 AND REPEATED EVERY 28 DAYS)
     Route: 048
     Dates: start: 200908, end: 201112

REACTIONS (1)
  - Fatigue [Unknown]
